FAERS Safety Report 7805061-5 (Version None)
Quarter: 2011Q4

REPORT INFORMATION
  Report Type: 
  Country: None (occurrence: None)
  Receive Date: 20111010
  Receipt Date: 20110930
  Transmission Date: 20120403
  Serious: Yes (Hospitalization, Other)
  Sender: FDA-Public Use
  Company Number: CA-GLAXOSMITHKLINE-B0747701A

PATIENT
  Age: 41 Year
  Sex: Female

DRUGS (4)
  1. CLOZAPINE [Suspect]
     Indication: SCHIZOPHRENIA, PARANOID TYPE
     Dosage: 100MG VARIABLE DOSE
     Route: 048
     Dates: start: 20020101
  2. HALOPERIDOL [Concomitant]
     Route: 030
  3. LAMOTRIGINE [Suspect]
     Indication: PSYCHOTIC DISORDER
     Route: 048
     Dates: start: 20070101
  4. RISPERIDONE [Concomitant]
     Route: 065

REACTIONS (5)
  - PSYCHIATRIC SYMPTOM [None]
  - AGRANULOCYTOSIS [None]
  - SEDATION [None]
  - NEUTROPHIL COUNT DECREASED [None]
  - EXTRAPYRAMIDAL DISORDER [None]
